FAERS Safety Report 4885989-9 (Version None)
Quarter: 2006Q1

REPORT INFORMATION
  Report Type: 
  Country: None (occurrence: None)
  Receive Date: 20060117
  Receipt Date: 20060105
  Transmission Date: 20060701
  Serious: Yes (Death)
  Sender: FDA-Public Use
  Company Number: 2006004974

PATIENT
  Age: 16 Year
  Sex: Male

DRUGS (1)
  1. GENOTROPIN [Suspect]
     Indication: BODY HEIGHT BELOW NORMAL
     Dosage: 0.175 MG/KG, SUBCUTANEOUS
     Route: 058
     Dates: start: 20011201, end: 20051201

REACTIONS (2)
  - CONGENITAL CEREBROVASCULAR ANOMALY [None]
  - SUBARACHNOID HAEMORRHAGE [None]
